FAERS Safety Report 14057380 (Version 1)
Quarter: 2017Q4

REPORT INFORMATION
  Report Type: Spontaneous
  Country: US (occurrence: US)
  Receive Date: 20171006
  Receipt Date: 20171006
  Transmission Date: 20180321
  Serious: No
  Sender: FDA-Public Use
  Company Number: US-CELGENEUS-USA-20171001320

PATIENT
  Age: 52 Year
  Sex: Female
  Weight: 41.77 kg

DRUGS (3)
  1. THALOMID [Suspect]
     Active Substance: THALIDOMIDE
     Indication: OFF LABEL USE
  2. THALOMID [Suspect]
     Active Substance: THALIDOMIDE
     Indication: CHRONIC GRAFT VERSUS HOST DISEASE
     Dosage: 100 MILLIGRAM
     Route: 048
     Dates: start: 201011
  3. THALOMID [Suspect]
     Active Substance: THALIDOMIDE
     Indication: BONE MARROW TRANSPLANT
     Dosage: 150 MILLIGRAM
     Route: 048
     Dates: start: 201203

REACTIONS (3)
  - Fall [Unknown]
  - Diarrhoea [Unknown]
  - Weight decreased [Unknown]

NARRATIVE: CASE EVENT DATE: 20170831
